FAERS Safety Report 25989928 (Version 1)
Quarter: 2025Q4

REPORT INFORMATION
  Report Type: Spontaneous
  Country: US (occurrence: None)
  Receive Date: 20251101
  Receipt Date: 20251101
  Transmission Date: 20260118
  Serious: Yes (Hospitalization)
  Sender: FDA-CTU
  Company Number: None

PATIENT
  Age: 60 Year
  Sex: Female

DRUGS (1)
  1. STELARA [Suspect]
     Active Substance: USTEKINUMAB
     Dosage: OTHER FREQUENCY : EVERY 8 WEEKS ;?
     Route: 058

REACTIONS (5)
  - Pulmonary embolism [None]
  - Electrolyte imbalance [None]
  - Pneumonia [None]
  - Hepatic cirrhosis [None]
  - Crohn^s disease [None]
